FAERS Safety Report 9271132 (Version 1)
Quarter: 2013Q2

REPORT INFORMATION
  Report Type: Report from Study
  Country: NL (occurrence: NL)
  Receive Date: 20130506
  Receipt Date: 20130506
  Transmission Date: 20140414
  Serious: Yes (Other)
  Sender: FDA-Public Use
  Company Number: PHHY2013NL042486

PATIENT
  Age: 74 Year
  Sex: Female

DRUGS (2)
  1. ZOMETA [Suspect]
     Indication: RENAL CELL CARCINOMA
     Dosage: 4 MG PER 100 ML, EVERY 28 DAYS
     Route: 041
  2. ZOMETA [Suspect]
     Dosage: 4 MG PER 100 ML, EVERY 28 DAYS
     Dates: start: 20130305

REACTIONS (1)
  - Terminal state [Unknown]
